FAERS Safety Report 25806694 (Version 2)
Quarter: 2025Q4

REPORT INFORMATION
  Report Type: Spontaneous
  Country: VE (occurrence: VE)
  Receive Date: 20250916
  Receipt Date: 20251117
  Transmission Date: 20260117
  Serious: Yes (Death, Hospitalization, Other)
  Sender: TAKEDA
  Company Number: VE-TAKEDA-2025TUS054639

PATIENT
  Sex: Female

DRUGS (1)
  1. ICLUSIG [Suspect]
     Active Substance: PONATINIB HYDROCHLORIDE
     Indication: Chronic myeloid leukaemia
     Dosage: 45 MILLIGRAM

REACTIONS (5)
  - Chronic myeloid leukaemia [Fatal]
  - Endocarditis [Unknown]
  - Leukocytosis [Unknown]
  - Neck pain [Unknown]
  - Pyrexia [Unknown]
